FAERS Safety Report 12626390 (Version 1)
Quarter: 2016Q3

REPORT INFORMATION
  Report Type: Report from Study
  Country: PT (occurrence: PT)
  Receive Date: 20160805
  Receipt Date: 20160805
  Transmission Date: 20161109
  Serious: Yes (Other)
  Sender: FDA-Public Use
  Company Number: PT-009507513-1608PRT001454

PATIENT
  Sex: Male

DRUGS (1)
  1. VICTRELIS [Suspect]
     Active Substance: BOCEPREVIR
     Dates: start: 20150324, end: 20150929

REACTIONS (7)
  - Asthenia [Unknown]
  - Visual acuity reduced [Unknown]
  - Headache [Unknown]
  - Malaise [Unknown]
  - Eye pain [Unknown]
  - Amnesia [Unknown]
  - Leukopenia [Unknown]
